FAERS Safety Report 26034572 (Version 1)
Quarter: 2025Q4

REPORT INFORMATION
  Report Type: Spontaneous
  Country: EU (occurrence: EU)
  Receive Date: 20251112
  Receipt Date: 20251112
  Transmission Date: 20260118
  Serious: Yes (Other)
  Sender: ACCORD
  Company Number: None

PATIENT
  Age: 79 Year
  Sex: Female

DRUGS (3)
  1. DAPTOMYCIN [Suspect]
     Active Substance: DAPTOMYCIN
     Indication: Product used for unknown indication
     Dates: start: 20230201, end: 20230207
  2. CEFTAZIDIME [Suspect]
     Active Substance: CEFTAZIDIME
     Indication: Product used for unknown indication
     Dates: start: 20230201, end: 20230201
  3. CEFEPIME HYDROCHLORIDE [Suspect]
     Active Substance: CEFEPIME HYDROCHLORIDE
     Indication: Enterobacter infection
     Dates: start: 20230201, end: 20230207

REACTIONS (3)
  - Disorientation [Not Recovered/Not Resolved]
  - Encephalopathy [Not Recovered/Not Resolved]
  - Clonus [Not Recovered/Not Resolved]

NARRATIVE: CASE EVENT DATE: 20230207
